FAERS Safety Report 12179797 (Version 1)
Quarter: 2016Q1

REPORT INFORMATION
  Report Type: Spontaneous
  Country: US (occurrence: None)
  Receive Date: 20160314
  Receipt Date: 20160314
  Transmission Date: 20160526
  Serious: No
  Sender: FDA-Public Use
  Company Number: None

PATIENT
  Age: 56 Year
  Sex: Male

DRUGS (11)
  1. SUTENT [Suspect]
     Active Substance: SUNITINIB MALATE
     Indication: CARCINOID TUMOUR
     Dosage: 50MG QD 4 WEEKS ON AND 2 WEEKS OFF; PO
     Route: 048
     Dates: start: 20160309
  2. VITAMIN D [Concomitant]
     Active Substance: CHOLECALCIFEROL
  3. COQ10 [Concomitant]
     Active Substance: UBIDECARENONE
  4. GABAPENTIN. [Concomitant]
     Active Substance: GABAPENTIN
  5. SELENIUM [Concomitant]
     Active Substance: SELENIUM
  6. FOLIC ACID. [Concomitant]
     Active Substance: FOLIC ACID
  7. MELATONIN [Concomitant]
     Active Substance: MELATONIN
  8. VITAMIN B12 [Concomitant]
     Active Substance: CYANOCOBALAMIN
  9. NALTREXONE [Concomitant]
     Active Substance: NALTREXONE
  10. ALPHA LIPOIC [Concomitant]
  11. TRAZODONE [Concomitant]
     Active Substance: TRAZODONE HYDROCHLORIDE

REACTIONS (2)
  - Headache [None]
  - Productive cough [None]

NARRATIVE: CASE EVENT DATE: 20160309
